FAERS Safety Report 20775542 (Version 1)
Quarter: 2022Q2

REPORT INFORMATION
  Report Type: Spontaneous
  Country: NL (occurrence: NL)
  Receive Date: 20220502
  Receipt Date: 20220502
  Transmission Date: 20220721
  Serious: Yes (Disabling)
  Sender: FDA-Public Use
  Company Number: None

PATIENT
  Age: 40 Year
  Sex: Female
  Weight: 84 kg

DRUGS (2)
  1. MODAFINIL [Suspect]
     Active Substance: MODAFINIL
     Indication: Prophylaxis
     Dosage: STRENGTH: 200 MG, BRAND NAME NOT SPECIFIED, THERAPY END DATE: ASKU
     Dates: start: 20220408
  2. VIAGRA [Concomitant]
     Active Substance: SILDENAFIL CITRATE
     Dosage: SILDENAFIL TABLET 50MG / VIAGRA TABLET 50MG; THERAPY START DATE :ASKU, THERAPY END DATE: ASKU

REACTIONS (2)
  - Cataplexy [Not Recovered/Not Resolved]
  - Narcolepsy [Not Recovered/Not Resolved]

NARRATIVE: CASE EVENT DATE: 20220409
